FAERS Safety Report 8978575 (Version 1)
Quarter: 2012Q4

REPORT INFORMATION
  Report Type: Spontaneous
  Country: US (occurrence: None)
  Receive Date: 20121218
  Receipt Date: 20121218
  Transmission Date: 20130627
  Serious: Yes (Other)
  Sender: FDA-Public Use
  Company Number: None

PATIENT
  Age: 60 Year
  Sex: Female

DRUGS (1)
  1. PANTOPRAZOLE, 40 MG [Suspect]
     Indication: GERD
     Dosage: once daily
     Route: 048
     Dates: start: 20121009, end: 20121112

REACTIONS (1)
  - Drug ineffective [None]
